FAERS Safety Report 7596829-1 (Version None)
Quarter: 2011Q3

REPORT INFORMATION
  Report Type: 
  Country: None (occurrence: None)
  Receive Date: 20110708
  Receipt Date: 20110630
  Transmission Date: 20111222
  Serious: Yes (Death, Other)
  Sender: FDA-Public Use
  Company Number: US-NAPPMUNDI-USA-2011-0061970

PATIENT
  Age: 16 Month
  Sex: Female

DRUGS (2)
  1. XANAX [Suspect]
     Indication: ACCIDENTAL EXPOSURE
  2. OXYCODONE HCL [Suspect]
     Indication: ACCIDENTAL EXPOSURE
     Dosage: UNK

REACTIONS (4)
  - MULTIPLE DRUG OVERDOSE [None]
  - LOSS OF CONSCIOUSNESS [None]
  - ACCIDENTAL EXPOSURE [None]
  - VICTIM OF HOMICIDE [None]
